FAERS Safety Report 5761515-7 (Version None)
Quarter: 2008Q2

REPORT INFORMATION
  Report Type: 
  Country: None (occurrence: None)
  Receive Date: 20080606
  Receipt Date: 20080509
  Transmission Date: 20081010
  Serious: No
  Sender: FDA-Public Use
  Company Number: US-BOEHRINGER INGELHEIM GMBH, GERMANY-2008-BP-06463BP

PATIENT
  Sex: Female

DRUGS (9)
  1. SPIRIVA [Suspect]
  2. MICARDIS [Concomitant]
  3. TRAMADOLE [Concomitant]
  4. EXTRA STRENGTH TYLENOL [Concomitant]
  5. LASIX [Concomitant]
  6. K DUR [Concomitant]
  7. ESTRACE [Concomitant]
  8. ATENOLOL [Concomitant]
  9. MULTIVATIMINS [Concomitant]

REACTIONS (1)
  - DRUG INEFFECTIVE [None]
